FAERS Safety Report 19689808 (Version 2)
Quarter: 2021Q3

REPORT INFORMATION
  Report Type: Report from Study
  Country: None (occurrence: AU)
  Receive Date: 20210811
  Receipt Date: 20210813
  Transmission Date: 20211014
  Serious: Yes (Hospitalization)
  Sender: FDA-Public Use
  Company Number: AU-ABBVIE-21K-008-4023310-00

PATIENT
  Age: 69 Year
  Sex: Female

DRUGS (4)
  1. PICOPREP [Concomitant]
     Active Substance: ANHYDROUS CITRIC ACID\MAGNESIUM OXIDE\SODIUM PICOSULFATE
     Indication: FAECALOMA
     Route: 048
     Dates: start: 20210730
  2. DUODOPA [Suspect]
     Active Substance: CARBIDOPA\LEVODOPA
  3. MOVICOL [Concomitant]
     Active Substance: POLYETHYLENE GLYCOL 3350\POTASSIUM CHLORIDE\SODIUM BICARBONATE\SODIUM CHLORIDE
     Indication: CONSTIPATION
     Route: 048
     Dates: start: 20210729
  4. DUODOPA [Suspect]
     Active Substance: CARBIDOPA\LEVODOPA
     Indication: PARKINSON^S DISEASE
     Route: 050
     Dates: start: 20210727

REACTIONS (5)
  - Abdominal pain [Recovered/Resolved]
  - Stoma site extravasation [Recovered/Resolved]
  - C-reactive protein increased [Unknown]
  - Constipation [Not Recovered/Not Resolved]
  - Faecaloma [Recovered/Resolved with Sequelae]

NARRATIVE: CASE EVENT DATE: 202107
